FAERS Safety Report 5498718-5 (Version None)
Quarter: 2007Q4

REPORT INFORMATION
  Report Type: 
  Country: None (occurrence: None)
  Receive Date: 20071026
  Receipt Date: 20070709
  Transmission Date: 20080405
  Serious: No
  Sender: FDA-Public Use
  Company Number: A0662516A

PATIENT
  Age: 54 Year
  Sex: Male

DRUGS (5)
  1. ADVAIR DISKUS 100/50 [Suspect]
     Indication: ASTHMA
     Dosage: 1PUFF TWICE PER DAY
     Route: 055
     Dates: start: 20070601
  2. REQUIP [Suspect]
     Indication: RESTLESS LEGS SYNDROME
     Dosage: 10MG AT NIGHT
     Route: 048
     Dates: start: 20070601
  3. PROAIR HFA [Concomitant]
  4. LISINOPRIL [Concomitant]
  5. TYLENOL (CAPLET) [Concomitant]

REACTIONS (2)
  - COUGH [None]
  - DYSPHONIA [None]
